FAERS Safety Report 7720887-4 (Version None)
Quarter: 2011Q3

REPORT INFORMATION
  Report Type: 
  Country: None (occurrence: None)
  Receive Date: 20110825
  Receipt Date: 20110809
  Transmission Date: 20111222
  Serious: Yes (Hospitalization)
  Sender: FDA-Public Use
  Company Number: 15712839

PATIENT
  Age: 66 Year
  Sex: Male

DRUGS (9)
  1. APIXABAN [Suspect]
     Indication: EMBOLISM
     Dosage: 1 DOSAGE FORM
     Route: 048
     Dates: start: 20100429, end: 20101006
  2. OMNIC (TAMSULOSIN HCL) [Concomitant]
  3. NEXIUM [Concomitant]
  4. PLACEBO [Suspect]
     Indication: EMBOLISM
     Route: 048
     Dates: start: 20100429, end: 20101006
  5. FINASTERIDE [Concomitant]
  6. WARFARIN SODIUM [Suspect]
     Dates: start: 20101006
  7. CENTYL K (BENDROFLUMETHIAZIDE + POTASSIUM) [Concomitant]
  8. NEULIN (THEOPHYLLINE) [Concomitant]
  9. DIOVAN [Concomitant]

REACTIONS (13)
  - BALANCE DISORDER [None]
  - DEAFNESS UNILATERAL [None]
  - EPISTAXIS [None]
  - EAR HAEMORRHAGE [None]
  - EXTRADURAL HAEMATOMA [None]
  - DISORIENTATION [None]
  - SKULL FRACTURED BASE [None]
  - FALL [None]
  - VERTIGO POSITIONAL [None]
  - ACCIDENT [None]
  - LOSS OF CONSCIOUSNESS [None]
  - HAEMATEMESIS [None]
  - DIZZINESS [None]
